FAERS Safety Report 24009284 (Version 1)
Quarter: 2024Q2

REPORT INFORMATION
  Report Type: Spontaneous
  Country: NO (occurrence: NO)
  Receive Date: 20240625
  Receipt Date: 20240625
  Transmission Date: 20240716
  Serious: Yes (Hospitalization, Disabling)
  Sender: FDA-Public Use
  Company Number: NO-MYLANLABS-2024M1057315

PATIENT
  Age: 73 Year
  Sex: Female

DRUGS (6)
  1. FLUTICASONE PROPIONATE\SALMETEROL XINAFOATE [Suspect]
     Active Substance: FLUTICASONE PROPIONATE\SALMETEROL XINAFOATE
     Indication: Chronic obstructive pulmonary disease
     Dosage: UNK
     Route: 065
  2. POSACONAZOLE [Suspect]
     Active Substance: POSACONAZOLE
     Indication: Mycotic endophthalmitis
     Dosage: 300 MILLIGRAM, QD
     Route: 048
  3. POSACONAZOLE [Suspect]
     Active Substance: POSACONAZOLE
     Indication: Fungal infection
  4. PREDNISOLONE [Suspect]
     Active Substance: PREDNISOLONE
     Indication: Chronic obstructive pulmonary disease
     Dosage: UNK,SHORT COURSES ONCE OR TWICE PER YEAR, TYPICALLY ADMINISTERED OVER 4 WEEKS, STARTING AT 20?30 MG/
     Route: 048
  5. PREDNISOLONE [Suspect]
     Active Substance: PREDNISOLONE
     Dosage: 5 MILLIGRAM, QD,RAPIDLY TAPERED
     Route: 048
  6. COTRIMOXAZOLE [Concomitant]
     Active Substance: SULFAMETHOXAZOLE\TRIMETHOPRIM
     Indication: Pneumonia haemophilus
     Dosage: UNK
     Route: 048

REACTIONS (10)
  - Immunosuppression [Unknown]
  - Mycotic endophthalmitis [Unknown]
  - Fungal infection [Recovering/Resolving]
  - Pupillary disorder [Unknown]
  - Iris bombe [Unknown]
  - Glaucoma [Unknown]
  - Pneumonia haemophilus [Unknown]
  - Myalgia [Unknown]
  - Hypoacusis [Unknown]
  - Cough [Unknown]
